FAERS Safety Report 4499778-0 (Version None)
Quarter: 2004Q4

REPORT INFORMATION
  Report Type: 
  Country: None (occurrence: None)
  Receive Date: 20041108
  Receipt Date: 20041026
  Transmission Date: 20050328
  Serious: Yes (Other)
  Sender: FDA-Public Use
  Company Number: B0349587A

PATIENT
  Age: 30 Year
  Sex: Female

DRUGS (5)
  1. EPIVIR [Suspect]
     Dosage: 150 MG /TWICE PER DAY/
     Dates: start: 19981001, end: 20011001
  2. COMBIVIR [Suspect]
     Dosage: TWICE PER DAY/ORAL
     Route: 048
  3. STAVUDINE (STAVUDINE) [Suspect]
     Dosage: 40 MG / TWICE PER DAY
     Dates: start: 19981001, end: 20011001
  4. INDINAVIR SULFATE (INDINAVIR SULFATE) [Suspect]
     Dosage: 800 MG /THREE TIMES PER DAY
     Dates: start: 19981001, end: 20011001
  5. NELFINAVIR MESYLATE (NELFINAVIR MESYLATE) [Suspect]
     Dosage: 1250 MG/TWICE PER DAY
     Dates: start: 20011001

REACTIONS (5)
  - ABORTION INDUCED [None]
  - BLOOD HIV RNA INCREASED [None]
  - CD4 LYMPHOCYTES DECREASED [None]
  - DRUG EXPOSURE DURING PREGNANCY [None]
  - PREGNANCY [None]
